FAERS Safety Report 7304227-0 (Version None)
Quarter: 2011Q1

REPORT INFORMATION
  Report Type: 
  Country: None (occurrence: None)
  Receive Date: 20110221
  Receipt Date: 20110208
  Transmission Date: 20110831
  Serious: No
  Sender: FDA-Public Use
  Company Number: US-BAYER-2010-009105

PATIENT
  Sex: Female
  Weight: 145 kg

DRUGS (1)
  1. MIRENA [Suspect]
     Indication: CONTRACEPTION
     Dosage: 20 ?G, CONT
     Dates: start: 20100323, end: 20110104

REACTIONS (1)
  - PREGNANCY WITH CONTRACEPTIVE DEVICE [None]
